FAERS Safety Report 4369498-1 (Version None)
Quarter: 2004Q2

REPORT INFORMATION
  Report Type: 
  Country: None (occurrence: None)
  Receive Date: 20040603
  Receipt Date: 20040520
  Transmission Date: 20050107
  Serious: Yes (Other)
  Sender: FDA-Public Use
  Company Number: 200411793JP

PATIENT
  Age: 67 Year
  Sex: Female

DRUGS (4)
  1. KETEK [Suspect]
     Indication: INFECTION
     Route: 048
     Dates: start: 20040507, end: 20040511
  2. DIPYRIDAMOLE [Concomitant]
     Indication: PRODUCTIVE COUGH
     Route: 048
     Dates: start: 20040507, end: 20040511
  3. BAZAROIN [Concomitant]
     Indication: INFLAMMATION
     Dosage: DOSE: 3 TABLETS
     Route: 048
     Dates: start: 20040507, end: 20040511
  4. MEDICON [Concomitant]
     Indication: COUGH
     Dosage: DOSE: 6 TABLETS
     Route: 048
     Dates: start: 20040507, end: 20040511

REACTIONS (8)
  - BLOOD CREATININE INCREASED [None]
  - BLOOD UREA INCREASED [None]
  - BLOOD URIC ACID INCREASED [None]
  - FEELING HOT [None]
  - INFLAMMATION [None]
  - PRURITUS GENERALISED [None]
  - RASH GENERALISED [None]
  - RENAL DISORDER [None]
